FAERS Safety Report 8243470-3 (Version None)
Quarter: 2012Q1

REPORT INFORMATION
  Report Type: 
  Country: None (occurrence: None)
  Receive Date: 20120329
  Receipt Date: 20120323
  Transmission Date: 20120608
  Serious: Yes (Hospitalization, Other)
  Sender: FDA-Public Use
  Company Number: JP-ABBOTT-12P-087-0903577-00

PATIENT
  Age: 56 Year
  Sex: Male

DRUGS (20)
  1. GABEXATE MESILATE [Suspect]
     Dates: start: 20120114, end: 20120130
  2. URSODIOL [Concomitant]
     Indication: PRODUCT USED FOR UNKNOWN INDICATION
     Route: 048
     Dates: start: 20110921, end: 20120105
  3. FAMOTIDINE [Concomitant]
     Dates: start: 20120206
  4. LIPACREON [Suspect]
     Indication: ALCOHOLIC PANCREATITIS
     Dates: start: 20120111, end: 20120113
  5. URSODIOL [Concomitant]
     Dates: start: 20120206
  6. FAMOTIDINE [Concomitant]
     Indication: PRODUCT USED FOR UNKNOWN INDICATION
     Route: 048
     Dates: start: 20110921, end: 20120105
  7. CARVEDILOL [Concomitant]
     Indication: PRODUCT USED FOR UNKNOWN INDICATION
     Route: 048
     Dates: start: 20110921, end: 20120105
  8. ALLOPURINOL [Concomitant]
     Indication: PRODUCT USED FOR UNKNOWN INDICATION
     Route: 048
     Dates: start: 20110921, end: 20120105
  9. LIPACREON [Suspect]
     Indication: PANCREATITIS CHRONIC
     Route: 048
  10. GABEXATE MESILATE [Suspect]
     Dates: start: 20120111, end: 20120113
  11. URSODIOL [Concomitant]
     Dates: start: 20120111, end: 20120113
  12. CAMOSTAT MESILATE [Concomitant]
     Indication: PRODUCT USED FOR UNKNOWN INDICATION
     Route: 048
     Dates: start: 20120111, end: 20120113
  13. CEFOPERAZONE SODIUM/SULBACTAM SODIUM [Concomitant]
     Indication: PRODUCT USED FOR UNKNOWN INDICATION
     Route: 042
     Dates: start: 20120105, end: 20120126
  14. LIPACREON [Suspect]
     Indication: PANCREATITIS RELAPSING
     Route: 048
     Dates: start: 20110921, end: 20120105
  15. LIPACREON [Suspect]
     Dates: start: 20120130, end: 20120206
  16. GABEXATE MESILATE [Suspect]
     Indication: PRODUCT USED FOR UNKNOWN INDICATION
     Dosage: 1000 MG DAILY
     Dates: start: 20120105, end: 20120110
  17. KETOPROFEN [Concomitant]
     Indication: PRODUCT USED FOR UNKNOWN INDICATION
     Dosage: 40 MG DAILY
     Route: 062
     Dates: start: 20110921
  18. VALSARTAN  AND HYDROCHLOROTHIAZIDE [Concomitant]
     Indication: PRODUCT USED FOR UNKNOWN INDICATION
     Route: 048
     Dates: start: 20110921, end: 20120105
  19. NIFEDIPINE [Concomitant]
     Indication: PRODUCT USED FOR UNKNOWN INDICATION
     Route: 048
     Dates: start: 20110921, end: 20120105
  20. FAMOTIDINE [Concomitant]
     Dates: start: 20120111, end: 20120113

REACTIONS (2)
  - PANCREATITIS ACUTE [None]
  - EOSINOPHIL COUNT INCREASED [None]
